FAERS Safety Report 4844603-9 (Version None)
Quarter: 2005Q4

REPORT INFORMATION
  Report Type: 
  Country: None (occurrence: None)
  Receive Date: 20051125
  Receipt Date: 20051115
  Transmission Date: 20060501
  Serious: Yes (Hospitalization)
  Sender: FDA-Public Use
  Company Number: 2005157366

PATIENT
  Age: 64 Year
  Sex: Male

DRUGS (4)
  1. NEURONTIN [Suspect]
     Indication: DEPRESSION
     Dosage: 800 MG (1 D), ORAL
     Route: 048
     Dates: start: 20030212, end: 20030216
  2. RISPERDAL [Suspect]
     Indication: ILL-DEFINED DISORDER
     Dates: start: 20030213
  3. MIRTAZAPINE [Suspect]
     Indication: ILL-DEFINED DISORDER
     Dosage: 30 MG (1 D)
     Dates: start: 20030212, end: 20030220
  4. EUNERPAN (MELPERONE HYDROCHLORIDE) [Suspect]
     Indication: ILL-DEFINED DISORDER
     Dosage: 50 MG (1 D)
     Dates: start: 20021212, end: 20030217

REACTIONS (4)
  - DRUG INTERACTION [None]
  - RASH GENERALISED [None]
  - RASH MACULO-PAPULAR [None]
  - RASH PRURITIC [None]
